FAERS Safety Report 9700276 (Version 2)
Quarter: 2014Q1

REPORT INFORMATION
  Report Type: Spontaneous
  Country: IT (occurrence: IT)
  Receive Date: 20131121
  Receipt Date: 20140114
  Transmission Date: 20141002
  Serious: Yes (Hospitalization)
  Sender: FDA-Public Use
  Company Number: IT-JNJFOC-20131108467

PATIENT
  Age: 10 Year
  Sex: Male
  Weight: 29 kg

DRUGS (1)
  1. SERENASE [Suspect]
     Indication: EATING DISORDER
     Route: 048
     Dates: start: 20131107, end: 20131108

REACTIONS (4)
  - Dystonia [Recovered/Resolved]
  - Hypertonia [Recovered/Resolved]
  - Overdose [Recovered/Resolved]
  - Off label use [Unknown]
